FAERS Safety Report 4813894-2 (Version None)
Quarter: 2005Q4

REPORT INFORMATION
  Report Type: 
  Country: None (occurrence: None)
  Receive Date: 20051028
  Receipt Date: 20050404
  Transmission Date: 20060501
  Serious: Yes (Other)
  Sender: FDA-Public Use
  Company Number: US-GLAXOSMITHKLINE-A0552583A

PATIENT
  Age: 68 Year
  Sex: Male
  Weight: 91.4 kg

DRUGS (2)
  1. ADVAIR DISKUS 100/50 [Suspect]
     Indication: ASTHMA
     Route: 055
  2. SINGULAIR [Concomitant]

REACTIONS (5)
  - ASTHMA [None]
  - DYSPNOEA [None]
  - ILL-DEFINED DISORDER [None]
  - PEAK EXPIRATORY FLOW RATE DECREASED [None]
  - PHARMACEUTICAL PRODUCT COMPLAINT [None]
